FAERS Safety Report 7214949-8 (Version None)
Quarter: 2011Q1

REPORT INFORMATION
  Report Type: 
  Country: None (occurrence: None)
  Receive Date: 20110107
  Receipt Date: 20100707
  Transmission Date: 20110831
  Serious: No
  Sender: FDA-Public Use
  Company Number: A0862450A

PATIENT
  Age: 59 Year
  Sex: Female

DRUGS (3)
  1. THYROID TAB [Concomitant]
  2. SYNTHROID [Concomitant]
  3. LOVAZA [Suspect]
     Dosage: 2CAP PER DAY
     Route: 048
     Dates: start: 20100528, end: 20100601

REACTIONS (5)
  - PAIN [None]
  - ARTHRALGIA [None]
  - PAIN IN EXTREMITY [None]
  - MUSCLE SPASMS [None]
  - DISCOMFORT [None]
